FAERS Safety Report 8366284-2 (Version None)
Quarter: 2012Q2

REPORT INFORMATION
  Report Type: 
  Country: None (occurrence: None)
  Receive Date: 20120517
  Receipt Date: 20120511
  Transmission Date: 20120825
  Serious: Yes (Other)
  Sender: FDA-Public Use
  Company Number: PHHY2012BR041136

PATIENT
  Sex: Male
  Weight: 69 kg

DRUGS (6)
  1. OMEPRAZOLE [Concomitant]
     Indication: GASTROINTESTINAL DISORDER
     Dosage: 2 DF (20MG), DAILY
     Route: 048
  2. DIOVAN [Suspect]
     Indication: HYPERTENSION
     Dosage: 320 MG, DAILY
  3. HYDROCHLOROTHIAZIDE [Concomitant]
     Indication: DIURETIC THERAPY
     Dosage: 2 DF (25MG), DAILY
     Route: 048
  4. ATENOLOL [Concomitant]
     Indication: HYPERTENSION
     Dosage: 2 DF (25MG), IN THE MORNING
  5. ASPIRIN [Concomitant]
     Indication: CARDIOVASCULAR DISORDER
     Dosage: 2 DF (100MG), DAILY
     Route: 048
  6. ASPIRIN [Concomitant]

REACTIONS (5)
  - GAIT DISTURBANCE [None]
  - HEMIPLEGIA [None]
  - BLOOD GLUCOSE INCREASED [None]
  - HYPERTENSION [None]
  - CEREBROVASCULAR ACCIDENT [None]
